FAERS Safety Report 7021869-0 (Version None)
Quarter: 2010Q3

REPORT INFORMATION
  Report Type: 
  Country: None (occurrence: None)
  Receive Date: 20100930
  Receipt Date: 20100921
  Transmission Date: 20110219
  Serious: Yes (Hospitalization, Other)
  Sender: FDA-Public Use
  Company Number: JP-JNJFOC-20100704172

PATIENT
  Sex: Female
  Weight: 36 kg

DRUGS (22)
  1. DUROTEP MT [Suspect]
     Indication: SPINAL COMPRESSION FRACTURE
     Route: 062
  2. DUROTEP MT [Suspect]
     Route: 062
  3. DUROTEP MT [Suspect]
     Indication: RHEUMATOID ARTHRITIS
     Route: 062
  4. DUROTEP MT [Suspect]
     Route: 062
  5. RISPERDAL [Concomitant]
     Route: 048
  6. PARIET [Concomitant]
     Route: 048
  7. SEDIEL [Concomitant]
     Route: 048
  8. PAXIL [Concomitant]
     Route: 048
  9. SEROQUEL [Concomitant]
     Route: 048
  10. SILECE [Concomitant]
     Route: 048
  11. MAGMITT [Concomitant]
     Route: 048
  12. MYSLEE [Concomitant]
     Route: 048
  13. FOLIAMIN [Concomitant]
     Route: 048
  14. RHEUMATREX [Concomitant]
     Route: 048
  15. ACTONEL [Concomitant]
     Route: 048
  16. DAI-BOFU-TO [Concomitant]
     Route: 048
  17. RIKKUNSHI-TO [Concomitant]
     Route: 048
  18. PREDONINE [Concomitant]
     Indication: RHEUMATOID ARTHRITIS
     Route: 048
  19. ENBREL [Concomitant]
     Indication: RHEUMATOID ARTHRITIS
     Route: 042
  20. CELECOX [Concomitant]
     Indication: RHEUMATOID ARTHRITIS
     Route: 048
  21. DORAL [Concomitant]
     Indication: INSOMNIA
     Route: 048
  22. ROHYPNOL [Concomitant]
     Indication: INSOMNIA
     Route: 048

REACTIONS (12)
  - ALTERED STATE OF CONSCIOUSNESS [None]
  - COUGH [None]
  - DRUG PRESCRIBING ERROR [None]
  - HYPOVENTILATION [None]
  - INTERVERTEBRAL DISCITIS [None]
  - PNEUMONIA ASPIRATION [None]
  - PYREXIA [None]
  - SLEEP TALKING [None]
  - SOMNOLENCE [None]
  - SPEECH DISORDER [None]
  - STAPHYLOCOCCAL SEPSIS [None]
  - WRONG TECHNIQUE IN DRUG USAGE PROCESS [None]
